FAERS Safety Report 22720521 (Version 2)
Quarter: 2023Q4

REPORT INFORMATION
  Report Type: Spontaneous
  Country: US (occurrence: US)
  Receive Date: 20230719
  Receipt Date: 20231020
  Transmission Date: 20240110
  Serious: Yes (Other)
  Sender: FDA-Public Use
  Company Number: US-JNJFOC-20230718586

PATIENT
  Age: 75 Year
  Sex: Male
  Weight: 90.346 kg

DRUGS (2)
  1. DARZALEX FASPRO [Suspect]
     Active Substance: DARATUMUMAB\HYALURONIDASE-FIHJ
     Indication: Plasma cell myeloma
     Dosage: LAST DOSE: 05-JUN-2023
     Route: 065
     Dates: start: 20220901
  2. ZOMETA [Concomitant]
     Active Substance: ZOLEDRONIC ACID
     Indication: Product used for unknown indication
     Route: 042

REACTIONS (1)
  - Squamous cell carcinoma of the parotid gland [Unknown]

NARRATIVE: CASE EVENT DATE: 20230206
